FAERS Safety Report 11629706 (Version 2)
Quarter: 2015Q4

REPORT INFORMATION
  Report Type: Spontaneous
  Country: JP (occurrence: JP)
  Receive Date: 20151014
  Receipt Date: 20151023
  Transmission Date: 20160304
  Serious: Yes (Other)
  Sender: FDA-Public Use
  Company Number: JP-PFIZER INC-2015341432

PATIENT
  Age: 57 Year
  Sex: Female

DRUGS (4)
  1. FOSPHENYTOIN SODIUM. [Suspect]
     Active Substance: FOSPHENYTOIN SODIUM
     Indication: STATUS EPILEPTICUS
     Dosage: 23.8 MG/KG, 1X/DAY
     Route: 041
     Dates: start: 20151003, end: 20151003
  2. MIDAZOLAM [Concomitant]
     Active Substance: MIDAZOLAM\MIDAZOLAM HYDROCHLORIDE
     Dosage: UNK
  3. FOSPHENYTOIN SODIUM. [Suspect]
     Active Substance: FOSPHENYTOIN SODIUM
     Dosage: 23.8 MG/KG, 1X/DAY
     Route: 041
     Dates: start: 20151009, end: 20151009
  4. FOSPHENYTOIN SODIUM. [Suspect]
     Active Substance: FOSPHENYTOIN SODIUM
     Dosage: 7.5 MG/KG X 4, UNK
     Route: 041
     Dates: start: 20151010, end: 20151012

REACTIONS (7)
  - Hepatitis fulminant [Recovering/Resolving]
  - Heart rate decreased [Unknown]
  - Hypotension [Unknown]
  - Renal impairment [Unknown]
  - Platelet count decreased [Not Recovered/Not Resolved]
  - Drug effect incomplete [Recovered/Resolved]
  - Oliguria [Unknown]

NARRATIVE: CASE EVENT DATE: 20151003
